FAERS Safety Report 8514758-3 (Version None)
Quarter: 2012Q3

REPORT INFORMATION
  Report Type: 
  Country: None (occurrence: None)
  Receive Date: 20120717
  Receipt Date: 20120712
  Transmission Date: 20120928
  Serious: Yes (Hospitalization, Other)
  Sender: FDA-Public Use
  Company Number: US-BAYER-2012-070617

PATIENT
  Age: 32 Year
  Sex: Female

DRUGS (2)
  1. YASMIN [Suspect]
  2. DERMATOLOGICALS [Concomitant]
     Indication: ROSACEA

REACTIONS (2)
  - DEEP VEIN THROMBOSIS [None]
  - CHOLELITHIASIS [None]
